FAERS Safety Report 18809181 (Version 1)
Quarter: 2021Q1

REPORT INFORMATION
  Report Type: Spontaneous
  Country: US (occurrence: US)
  Receive Date: 20210129
  Receipt Date: 20210129
  Transmission Date: 20210419
  Serious: Yes (Other)
  Sender: FDA-Public Use
  Company Number: US-PURDUE-USA-2020-0154422

PATIENT
  Sex: Male

DRUGS (2)
  1. HEROIN [Concomitant]
     Active Substance: DIAMORPHINE
     Route: 065
  2. OXYCONTIN [Suspect]
     Active Substance: OXYCODONE HYDROCHLORIDE
     Indication: ACCIDENT AT WORK
     Dosage: 150 MG, MONTHLY
     Route: 048
     Dates: start: 20040729, end: 20140401

REACTIONS (3)
  - Hepatitis C [Unknown]
  - Unevaluable event [Unknown]
  - Drug dependence [Unknown]
